FAERS Safety Report 5121359-6 (Version None)
Quarter: 2006Q4

REPORT INFORMATION
  Report Type: 
  Country: None (occurrence: None)
  Receive Date: 20061002
  Receipt Date: 20060919
  Transmission Date: 20070319
  Serious: Yes (Hospitalization)
  Sender: FDA-Public Use
  Company Number: APP200600264

PATIENT
  Age: 28 Year
  Sex: Male

DRUGS (8)
  1. VANCOMYCIN HYDROCHLORIDE [Suspect]
     Indication: ANTI-INFECTIVE THERAPY
  2. CEFEPIME [Suspect]
     Indication: ANTI-INFECTIVE THERAPY
  3. AZTREONAM (AZTREONAM) [Concomitant]
  4. DOXYCYCLINE [Concomitant]
  5. LEVOFLOXACIN [Concomitant]
  6. METRONIDAZOLE [Concomitant]
  7. IMIPENEM (IMIPENEM) [Concomitant]
  8. CLINDAMYCIN (CLINDAMYCIN) [Concomitant]

REACTIONS (8)
  - APLASIA [None]
  - GENERAL PHYSICAL HEALTH DETERIORATION [None]
  - HYPOTENSION [None]
  - LEUKOPENIA [None]
  - MARROW HYPERPLASIA [None]
  - NEUTROPENIA [None]
  - PYREXIA [None]
  - SEPSIS [None]
